FAERS Safety Report 9687859 (Version 1)
Quarter: 2013Q4

REPORT INFORMATION
  Report Type: Spontaneous
  Country: US (occurrence: None)
  Receive Date: 20131113
  Receipt Date: 20131113
  Transmission Date: 20140711
  Serious: Yes (Hospitalization)
  Sender: FDA-Public Use
  Company Number: None

PATIENT
  Age: 45 Year
  Sex: Female
  Weight: 115.21 kg

DRUGS (18)
  1. ALEMTUZUMAB [Suspect]
     Indication: MULTIPLE SCLEROSIS
     Dates: start: 20131105, end: 20131108
  2. ACYCLOVIR [Concomitant]
  3. CIPROFLOXACIN [Concomitant]
  4. DIAZEPAM [Concomitant]
  5. DOCUSATE SODIUM [Concomitant]
  6. FLUCONAZOLE [Concomitant]
  7. HYDROXYZINE HCI [Concomitant]
  8. LASIX [Concomitant]
  9. METOPROLOL TARTRATE [Concomitant]
  10. OXYCODONE-ACETAMINOPHEN [Concomitant]
  11. VITAMIN D3 [Concomitant]
  12. TEMEZEPAM [Concomitant]
  13. RESPERIDONE [Concomitant]
  14. FERROUS SULPHATE [Concomitant]
  15. BISCADOYL [Concomitant]
  16. MUPIROCIN [Concomitant]
  17. ANALPRAM [Concomitant]
  18. ASPIRIN [Concomitant]

REACTIONS (7)
  - Syncope [None]
  - Hypotension [None]
  - Pneumonia [None]
  - Unresponsive to stimuli [None]
  - Atelectasis [None]
  - Faecal incontinence [None]
  - Haemorrhoidal haemorrhage [None]
